FAERS Safety Report 5062112-1 (Version None)
Quarter: 2006Q3

REPORT INFORMATION
  Report Type: 
  Country: None (occurrence: None)
  Receive Date: 20060721
  Receipt Date: 20060718
  Transmission Date: 20061208
  Serious: Yes (Hospitalization)
  Sender: FDA-Public Use
  Company Number: FRWYE411020FEB06

PATIENT
  Age: 75 Year
  Sex: Male

DRUGS (1)
  1. SIROLIMUS (SIROLIMUS,) [Suspect]
     Indication: NEOPLASM PROPHYLAXIS
     Dosage: 3 MG 1X PER 1 DAY ORAL
     Route: 048
     Dates: start: 20051103, end: 20060306

REACTIONS (7)
  - ANAEMIA [None]
  - ASTHENIA [None]
  - ATRIAL FLUTTER [None]
  - DIARRHOEA [None]
  - PLEURAL EFFUSION [None]
  - PNEUMONIA [None]
  - PROTEINURIA [None]
